FAERS Safety Report 15284595 (Version 1)
Quarter: 2018Q3

REPORT INFORMATION
  Report Type: Spontaneous
  Country: US (occurrence: US)
  Receive Date: 20180801
  Receipt Date: 20180801
  Transmission Date: 20181010
  Serious: Yes (Other)
  Sender: FDA-Public Use
  Company Number: None

PATIENT
  Age: 75 Year
  Sex: Female

DRUGS (1)
  1. BUDESONIDE EC 3MG [Suspect]
     Active Substance: BUDESONIDE
     Indication: DRUG THERAPY
     Route: 048

REACTIONS (2)
  - Erythema [None]
  - Swelling face [None]

NARRATIVE: CASE EVENT DATE: 20180720
